FAERS Safety Report 9143725 (Version 2)
Quarter: 2013Q2

REPORT INFORMATION
  Report Type: Spontaneous
  Country: JP (occurrence: JP)
  Receive Date: 20130306
  Receipt Date: 20130425
  Transmission Date: 20140414
  Serious: Yes (Hospitalization)
  Sender: FDA-Public Use
  Company Number: JP-ROCHE-1197606

PATIENT
  Age: 78 Year
  Sex: Female
  Weight: 44 kg

DRUGS (9)
  1. ACTEMRA [Suspect]
     Indication: RHEUMATOID ARTHRITIS
     Dosage: DOSAGE UNCERTAIN
     Route: 041
     Dates: start: 20110513, end: 20110905
  2. RHEUMATREX [Suspect]
     Indication: RHEUMATOID ARTHRITIS
     Route: 048
     Dates: end: 20111212
  3. PREDONINE [Concomitant]
     Indication: RHEUMATOID ARTHRITIS
     Dosage: 4-5MG/DAY
     Route: 048
  4. CLARITH [Concomitant]
     Indication: BRONCHITIS CHRONIC
     Route: 048
     Dates: start: 200901
  5. LIPITOR [Concomitant]
     Indication: DYSLIPIDAEMIA
     Route: 048
  6. PARIET [Concomitant]
     Indication: GASTRITIS
     Route: 048
     Dates: end: 201112
  7. MUCODYNE [Concomitant]
     Indication: BRONCHITIS CHRONIC
     Route: 048
     Dates: start: 200901
  8. FOSAMAX [Concomitant]
     Indication: PROPHYLAXIS
     Route: 048
     Dates: start: 20100928, end: 201112
  9. METHOTREXATE [Concomitant]
     Indication: RHEUMATOID ARTHRITIS
     Dosage: DOSAGE UNCERTAIN
     Route: 048

REACTIONS (1)
  - Pulmonary mass [Recovered/Resolved]
